FAERS Safety Report 23784406 (Version 1)
Quarter: 2024Q2

REPORT INFORMATION
  Report Type: Spontaneous
  Country: US (occurrence: US)
  Receive Date: 20240425
  Receipt Date: 20240425
  Transmission Date: 20240716
  Serious: No
  Sender: FDA-Public Use
  Company Number: US-SA-SAC20240418000512

PATIENT
  Age: 47 Year
  Sex: Female
  Weight: 79.37 kg

DRUGS (8)
  1. DUPIXENT [Suspect]
     Active Substance: DUPILUMAB
     Indication: Dermatitis allergic
     Dosage: 300 MG, QOW
     Route: 058
  2. DUPIXENT [Suspect]
     Active Substance: DUPILUMAB
     Indication: Dermatitis atopic
  3. COMIRNATY (TOZINAMERAN) [Concomitant]
     Active Substance: TOZINAMERAN
  4. HYDROCORTISONE [Concomitant]
     Active Substance: HYDROCORTISONE
  5. MELOXICAM [Concomitant]
     Active Substance: MELOXICAM
  6. TIZANIDINE [Concomitant]
     Active Substance: TIZANIDINE
  7. TRIAMCINOLONE ACETONIDE [Concomitant]
     Active Substance: TRIAMCINOLONE ACETONIDE
  8. HYDROCHLOROTHIAZIDE\LOSARTAN [Concomitant]
     Active Substance: HYDROCHLOROTHIAZIDE\LOSARTAN

REACTIONS (1)
  - Skin discolouration [Not Recovered/Not Resolved]
